FAERS Safety Report 22234983 (Version 1)
Quarter: 2023Q2

REPORT INFORMATION
  Report Type: Report from Study
  Country: IT (occurrence: IT)
  Receive Date: 20230420
  Receipt Date: 20230420
  Transmission Date: 20230722
  Serious: Yes (Other)
  Sender: FDA-Public Use
  Company Number: None

PATIENT
  Age: 59 Year
  Sex: Male

DRUGS (2)
  1. AZACITIDINE [Suspect]
     Active Substance: AZACITIDINE
     Indication: Acute myeloid leukaemia
     Dosage: 75 MILLIGRAM/SQ. METER, QD(75 MG/M2/DAY FOR SEVEN DAYS)
     Route: 058
     Dates: start: 20230328, end: 20230330
  2. VENETOCLAX [Suspect]
     Active Substance: VENETOCLAX
     Indication: Acute myeloid leukaemia
     Dosage: 75 MILLIGRAM/SQ. METER, QD(FOR SEVEN DAYS, 100 MG ON 03/28 AND 200 MG ON 03/29
     Route: 048
     Dates: start: 20230328, end: 20230329

REACTIONS (3)
  - Melaena [Recovered/Resolved]
  - Colitis [Recovering/Resolving]
  - Abdominal pain [Recovering/Resolving]

NARRATIVE: CASE EVENT DATE: 20230330
